FAERS Safety Report 25968213 (Version 1)
Quarter: 2025Q4

REPORT INFORMATION
  Report Type: Spontaneous
  Country: EU (occurrence: EU)
  Receive Date: 20251028
  Receipt Date: 20251028
  Transmission Date: 20260118
  Serious: Yes (Other)
  Sender: AUROBINDO
  Company Number: EU-AFSSAPS-RS2024000821

PATIENT
  Age: 64 Year
  Sex: Male
  Weight: 76.8 kg

DRUGS (2)
  1. CLOXACILLIN [Suspect]
     Active Substance: CLOXACILLIN
     Indication: Staphylococcal bacteraemia
     Dosage: 12 GRAM, ONCE A DAY
     Route: 042
     Dates: start: 20240803, end: 20240814
  2. DAPTOMYCIN [Suspect]
     Active Substance: DAPTOMYCIN
     Indication: Staphylococcal bacteraemia
     Dosage: 750 MILLIGRAM, ONCE A DAY
     Route: 042
     Dates: start: 20240808, end: 20240814

REACTIONS (1)
  - Renal tubular disorder [Recovered/Resolved]

NARRATIVE: CASE EVENT DATE: 20240812
